FAERS Safety Report 24423837 (Version 1)
Quarter: 2024Q4

REPORT INFORMATION
  Report Type: Spontaneous
  Country: US (occurrence: None)
  Receive Date: 20241009
  Receipt Date: 20241009
  Transmission Date: 20250115
  Serious: No
  Sender: Public
  Company Number: None

PATIENT
  Age: 81 Year
  Sex: Female
  Weight: 80 kg

DRUGS (1)
  1. LEQVIO [Suspect]
     Active Substance: INCLISIRAN SODIUM
     Indication: Type V hyperlipidaemia
     Dosage: OTHER FREQUENCY : ONCE;?
     Route: 058
     Dates: start: 20231212

REACTIONS (3)
  - Arthralgia [None]
  - Pain in extremity [None]
  - Post procedural complication [None]

NARRATIVE: CASE EVENT DATE: 20240613
